FAERS Safety Report 10923097 (Version 26)
Quarter: 2018Q4

REPORT INFORMATION
  Report Type: Report from Study
  Country: CA (occurrence: CA)
  Receive Date: 20150317
  Receipt Date: 20181030
  Transmission Date: 20190204
  Serious: Yes (Hospitalization, Other)
  Sender: FDA-Public Use
  Company Number: PHHY2010CA15776

PATIENT
  Age: 55 Year
  Sex: Male
  Weight: 100 kg

DRUGS (9)
  1. AMLODIPINE [Suspect]
     Active Substance: AMLODIPINE BESYLATE
     Indication: BLOOD PRESSURE ABNORMAL
     Dosage: 10 MG, QD
     Route: 065
     Dates: start: 2016
  2. HUMULIN R [Concomitant]
     Active Substance: INSULIN HUMAN
     Indication: PRODUCT USED FOR UNKNOWN INDICATION
     Dosage: BID
     Route: 065
  3. ALTACE [Concomitant]
     Active Substance: RAMIPRIL
     Indication: PRODUCT USED FOR UNKNOWN INDICATION
     Dosage: UNK, QD
     Route: 065
  4. LANTUS [Concomitant]
     Active Substance: INSULIN GLARGINE
     Indication: PRODUCT USED FOR UNKNOWN INDICATION
     Dosage: QD (DAILY)
     Route: 065
  5. CRESTOR [Concomitant]
     Active Substance: ROSUVASTATIN CALCIUM
     Indication: PRODUCT USED FOR UNKNOWN INDICATION
     Dosage: QD (DAILY)
     Route: 065
  6. SANDOSTATIN LAR DEPOT [Suspect]
     Active Substance: OCTREOTIDE ACETATE
     Dosage: 40 MG, QMO, EVERY 4 WEEKS
     Route: 030
     Dates: start: 20130305
  7. ASA [Concomitant]
     Active Substance: ASPIRIN
     Indication: PRODUCT USED FOR UNKNOWN INDICATION
     Dosage: 81 MG, QD
     Route: 048
  8. SANDOSTATIN LAR DEPOT [Suspect]
     Active Substance: OCTREOTIDE ACETATE
     Dosage: 30 MG, QMO, EVERY 4 WEEKS
     Route: 030
     Dates: start: 20141216
  9. SANDOSTATIN LAR DEPOT [Suspect]
     Active Substance: OCTREOTIDE ACETATE
     Indication: CARCINOID TUMOUR
     Dosage: 30 MG, QMO, EVERY 4 WEEKS
     Route: 030
     Dates: start: 20060710

REACTIONS (25)
  - Diabetes mellitus [Unknown]
  - Malaise [Unknown]
  - Orthostatic hypotension [Unknown]
  - Blood glucose decreased [Unknown]
  - Bronchitis [Recovering/Resolving]
  - Needle issue [Unknown]
  - Ocular icterus [Unknown]
  - Weight decreased [Unknown]
  - Body temperature decreased [Unknown]
  - Discomfort [Recovering/Resolving]
  - Bile duct obstruction [Unknown]
  - Device occlusion [Unknown]
  - Hepatic neoplasm [Unknown]
  - Blood pressure systolic increased [Recovering/Resolving]
  - Pain [Recovered/Resolved]
  - Post procedural complication [Unknown]
  - Yellow skin [Recovering/Resolving]
  - Incorrect dose administered [Unknown]
  - Tremor [Unknown]
  - Blood pressure diastolic decreased [Recovering/Resolving]
  - Heart rate decreased [Unknown]
  - Chills [Unknown]
  - Jaundice [Unknown]
  - Blood pressure increased [Unknown]
  - Blood pressure fluctuation [Recovering/Resolving]

NARRATIVE: CASE EVENT DATE: 20100303
